FAERS Safety Report 22264678 (Version 1)
Quarter: 2023Q2

REPORT INFORMATION
  Report Type: Spontaneous
  Country: AU (occurrence: AU)
  Receive Date: 20230428
  Receipt Date: 20230428
  Transmission Date: 20230722
  Serious: Yes (Other)
  Sender: FDA-Public Use
  Company Number: AU-MYLANLABS-2023M1044292

PATIENT
  Age: 35 Year
  Sex: Male
  Weight: 104 kg

DRUGS (14)
  1. AMISULPRIDE [Suspect]
     Active Substance: AMISULPRIDE
     Indication: Product used for unknown indication
     Dosage: UNK
     Route: 065
  2. OLANZAPINE [Suspect]
     Active Substance: OLANZAPINE
     Indication: Product used for unknown indication
     Dosage: UNK
     Route: 065
  3. RISPERIDONE [Suspect]
     Active Substance: RISPERIDONE
     Indication: Product used for unknown indication
     Dosage: UNK
     Route: 065
  4. CLOZAPINE [Suspect]
     Active Substance: CLOZAPINE
     Indication: Product used for unknown indication
     Dosage: 300 MILLIGRAM
     Route: 065
     Dates: start: 20170308, end: 20170327
  5. CLOZAPINE [Suspect]
     Active Substance: CLOZAPINE
     Dosage: 150 MILLIGRAM
     Route: 065
  6. CLOZAPINE [Suspect]
     Active Substance: CLOZAPINE
     Dosage: 300 MILLIGRAM
     Route: 065
  7. CLOZAPINE [Suspect]
     Active Substance: CLOZAPINE
     Dosage: 300 MILLIGRAM
     Route: 065
  8. ZIPRASIDONE [Suspect]
     Active Substance: ZIPRASIDONE
     Indication: Product used for unknown indication
     Dosage: UNK
     Route: 065
  9. VENLAFAXINE [Suspect]
     Active Substance: VENLAFAXINE HYDROCHLORIDE
     Indication: Product used for unknown indication
     Dosage: 375 MILLIGRAM, QD (MANE)
     Route: 065
  10. VALPROATE [Concomitant]
     Active Substance: VALPROIC ACID
     Dosage: 1800 MILLIGRAM, QD (START DATE:19-MAR-2021)300MG MANE, 1500MG NOCTE
     Route: 065
  11. ARIPIPRAZOLE [Concomitant]
     Active Substance: ARIPIPRAZOLE
     Dosage: 30 MILLIGRAM, QD  START DATE:01-AUG-2018(30MG MANE)
     Route: 065
  12. ZOPICLONE [Concomitant]
     Active Substance: ZOPICLONE
     Indication: Insomnia
     Dosage: 15 MILLIGRAM, QD (NOCTE)
     Route: 065
  13. QUETIAPINE [Concomitant]
     Active Substance: QUETIAPINE
     Indication: Agitation
     Dosage: 400 MILLIGRAM, QD (NOCTE)
     Route: 065
  14. QUETIAPINE [Concomitant]
     Active Substance: QUETIAPINE
     Dosage: 100-200MG TDS
     Route: 065

REACTIONS (19)
  - Myocarditis [Recovered/Resolved]
  - Suicide attempt [Unknown]
  - Suicidal ideation [Unknown]
  - Intentional self-injury [Unknown]
  - Hallucination, auditory [Unknown]
  - Spasmodic dysphonia [Unknown]
  - Extrapyramidal disorder [Unknown]
  - Gynaecomastia [Unknown]
  - White blood cell count increased [Recovered/Resolved]
  - Psychotic disorder [Unknown]
  - Orthostatic hypotension [Unknown]
  - Tachycardia [Unknown]
  - Persecutory delusion [Unknown]
  - Chest discomfort [Unknown]
  - Hyperhidrosis [Unknown]
  - Troponin increased [Unknown]
  - C-reactive protein increased [Unknown]
  - Antipsychotic drug level increased [Unknown]
  - Drug ineffective [Unknown]

NARRATIVE: CASE EVENT DATE: 20170301
